FAERS Safety Report 7195560-4 (Version None)
Quarter: 2010Q4

REPORT INFORMATION
  Report Type: 
  Country: None (occurrence: None)
  Receive Date: 20101223
  Receipt Date: 20101005
  Transmission Date: 20110411
  Serious: No
  Sender: FDA-Public Use
  Company Number: US-AMGEN-KDL443316

PATIENT

DRUGS (16)
  1. ENBREL [Suspect]
     Indication: RHEUMATOID ARTHRITIS
     Dosage: 50 MG, QWK
     Dates: start: 20100601
  2. FUROSEMIDE [Concomitant]
     Dosage: UNK UNK, UNK
  3. CONJUGATED ESTROGEN [Concomitant]
     Dosage: UNK UNK, UNK
  4. PREDNISONE [Concomitant]
     Dosage: UNK UNK, UNK
  5. AMLODIPINE [Concomitant]
     Dosage: UNK UNK, UNK
  6. METHOTREXATE [Concomitant]
     Dosage: UNK UNK, UNK
  7. VENLAFAXINE [Concomitant]
     Dosage: UNK UNK, UNK
  8. ATENOLOL [Concomitant]
     Dosage: UNK UNK, UNK
  9. OMEPRAZOLE [Concomitant]
     Dosage: UNK UNK, UNK
  10. FOLIC ACID [Concomitant]
     Dosage: UNK UNK, UNK
  11. CLONIDINE HCL [Concomitant]
     Dosage: UNK UNK, UNK
  12. MECLIZINE [Concomitant]
     Dosage: UNK UNK, UNK
  13. CYCLOBENZAPRINE [Concomitant]
     Dosage: UNK UNK, UNK
  14. SULFASALAZINE [Concomitant]
     Dosage: UNK UNK, UNK
  15. EZETIMIBE/SIMVASTATIN [Concomitant]
     Dosage: UNK UNK, UNK
  16. ASPIRIN [Concomitant]
     Dosage: UNK UNK, UNK

REACTIONS (2)
  - COUGH [None]
  - WHEEZING [None]
